FAERS Safety Report 14275529 (Version 1)
Quarter: 2017Q4

REPORT INFORMATION
  Report Type: Spontaneous
  Country: US (occurrence: US)
  Receive Date: 20171212
  Receipt Date: 20171212
  Transmission Date: 20180321
  Serious: Yes (Hospitalization, Other)
  Sender: FDA-Public Use
  Company Number: US-ZYDUS-018294

PATIENT
  Age: 69 Year
  Sex: Female

DRUGS (2)
  1. SOFOSBUVIR [Suspect]
     Active Substance: SOFOSBUVIR
     Indication: HEPATITIS C
     Route: 065
  2. RIBAVIRIN. [Suspect]
     Active Substance: RIBAVIRIN
     Indication: HEPATITIS C
     Route: 065

REACTIONS (7)
  - Hepatic encephalopathy [Unknown]
  - Hepatic function abnormal [Unknown]
  - Mental status changes [Unknown]
  - Jaundice [Unknown]
  - Urinary tract infection [Unknown]
  - Renal failure [Unknown]
  - Condition aggravated [Unknown]
